FAERS Safety Report 18273513 (Version 14)
Quarter: 2023Q4

REPORT INFORMATION
  Report Type: Other
  Country: CA (occurrence: None)
  Receive Date: 20200916
  Receipt Date: 20231009
  Transmission Date: 20240109
  Serious: No
  Sender: FDA-Public Use
  Company Number: CA-ROCHE-2273633

PATIENT
  Age: 25 Year
  Sex: Female

DRUGS (3)
  1. OCREVUS [Suspect]
     Active Substance: OCRELIZUMAB
     Indication: Relapsing-remitting multiple sclerosis
     Dosage: 300 MG AT DAY 0 AND 14, THEN 600 MG EVERY 6 MONTH
     Route: 042
     Dates: start: 20181231
  2. OMEGA 3 [Concomitant]
     Active Substance: CAPSAICIN
  3. BIOTIN [Concomitant]
     Active Substance: BIOTIN

REACTIONS (21)
  - Fatigue [Unknown]
  - Menstruation delayed [Not Recovered/Not Resolved]
  - Stress [Unknown]
  - Insomnia [Unknown]
  - Tremor [Unknown]
  - Pain in jaw [Unknown]
  - Insomnia [Unknown]
  - Muscle twitching [Unknown]
  - Infection [Recovered/Resolved]
  - Infusion related reaction [Recovered/Resolved]
  - Migraine [Recovered/Resolved]
  - Pelvic pain [Recovered/Resolved]
  - Influenza [Recovered/Resolved]
  - Acne [Not Recovered/Not Resolved]
  - Fungal infection [Recovering/Resolving]
  - Muscular weakness [Not Recovered/Not Resolved]
  - Hypoaesthesia [Not Recovered/Not Resolved]
  - Asthenia [Not Recovered/Not Resolved]
  - Pain in extremity [Recovered/Resolved]
  - Oropharyngeal pain [Unknown]
  - Tooth disorder [Not Recovered/Not Resolved]

NARRATIVE: CASE EVENT DATE: 20190101
